FAERS Safety Report 20713282 (Version 1)
Quarter: 2022Q2

REPORT INFORMATION
  Report Type: Report from Study
  Country: US (occurrence: US)
  Receive Date: 20220415
  Receipt Date: 20220415
  Transmission Date: 20220721
  Serious: Yes (Hospitalization)
  Sender: FDA-Public Use
  Company Number: US-MYLANLABS-2022M1027073

PATIENT
  Age: 38 Year
  Sex: Female

DRUGS (6)
  1. TEMOZOLOMIDE [Suspect]
     Active Substance: TEMOZOLOMIDE
     Indication: Pineal parenchymal neoplasm malignant
     Dosage: 75 MILLIGRAM/SQ. METER, QD (DAILY ORAL TEMOZOLOMIDE (75 MG/M2) FOR 6 WEEKS.)
     Route: 048
  2. TEMOZOLOMIDE [Suspect]
     Active Substance: TEMOZOLOMIDE
     Dosage: UNK (ADJUVANT 5 DAYS IN 28-DAY CYCLES TEMOZOLOMIDE AND COMPLETED APPROXIMATELY 3 TO 4 CYCLES.)
     Route: 048
  3. TEMOZOLOMIDE [Suspect]
     Active Substance: TEMOZOLOMIDE
     Dosage: UNK (AFTER APPROXIMATELY 3 MONTHS AT AN 80% REDUCED DOSE OWING TO A MISUNDERSTANDING)
     Route: 048
  4. TEMOZOLOMIDE [Suspect]
     Active Substance: TEMOZOLOMIDE
     Dosage: 200 MILLIGRAM/SQ. METER, QD (APPROPRIATE DOSE OF 5-DAY IN 28-DAY CYCLES TEMOZOLOMIDE (200 MG/M2) AND
     Route: 048
  5. TEMOZOLOMIDE [Suspect]
     Active Substance: TEMOZOLOMIDE
     Dosage: 50 MILLIGRAM/SQ. METER, QD (AS SALVAGE THERAPY WITH DAILY METRONOMIC TEMOZOLOMIDE (50 MG/M2))
     Route: 048
  6. BEVACIZUMAB [Suspect]
     Active Substance: BEVACIZUMAB
     Indication: Pineal parenchymal neoplasm malignant
     Dosage: UNK (SINGLE-AGENT BEVACIZUMAB)
     Route: 065

REACTIONS (4)
  - Drug ineffective [Unknown]
  - Fatigue [Unknown]
  - Nausea [Unknown]
  - Incorrect dose administered [Unknown]
